FAERS Safety Report 14664308 (Version 1)
Quarter: 2018Q1

REPORT INFORMATION
  Report Type: Spontaneous
  Country: CA (occurrence: CA)
  Receive Date: 20180321
  Receipt Date: 20180321
  Transmission Date: 20180509
  Serious: Yes (Other)
  Sender: FDA-Public Use
  Company Number: CA-PFIZER INC-2018097648

PATIENT
  Sex: Female

DRUGS (1)
  1. ADVIL [Suspect]
     Active Substance: IBUPROFEN
     Dosage: UNK

REACTIONS (5)
  - Dyspnoea [Unknown]
  - Foreign body in respiratory tract [Unknown]
  - Product shape issue [Unknown]
  - Choking [Unknown]
  - Throat irritation [Unknown]

NARRATIVE: CASE EVENT DATE: 20180306
